FAERS Safety Report 8031235-7 (Version None)
Quarter: 2012Q1

REPORT INFORMATION
  Report Type: 
  Country: None (occurrence: None)
  Receive Date: 20120109
  Receipt Date: 20111227
  Transmission Date: 20120608
  Serious: Yes (Other)
  Sender: FDA-Public Use
  Company Number: JP-MERCK-1201USA00289

PATIENT
  Age: 45 Year
  Sex: Female

DRUGS (2)
  1. PLETAL [Concomitant]
     Route: 048
  2. PEPCID [Suspect]
     Route: 048
     Dates: start: 20111121

REACTIONS (1)
  - APLASTIC ANAEMIA [None]
